FAERS Safety Report 21867718 (Version 2)
Quarter: 2023Q1

REPORT INFORMATION
  Report Type: Report from Study
  Country: US (occurrence: US)
  Receive Date: 20230116
  Receipt Date: 20230321
  Transmission Date: 20230418
  Serious: No
  Sender: FDA-Public Use
  Company Number: US-ABBVIE-4237943

PATIENT
  Sex: Female

DRUGS (1)
  1. RINVOQ [Suspect]
     Active Substance: UPADACITINIB
     Indication: Psoriasis
     Route: 048

REACTIONS (8)
  - Blood cholesterol increased [Unknown]
  - Heart rate increased [Not Recovered/Not Resolved]
  - Heart rate irregular [Recovering/Resolving]
  - Hypertension [Unknown]
  - Dizziness [Unknown]
  - Asthenia [Unknown]
  - Chromaturia [Unknown]
  - Migraine [Unknown]
